FAERS Safety Report 4698783-9 (Version None)
Quarter: 2005Q2

REPORT INFORMATION
  Report Type: 
  Country: None (occurrence: None)
  Receive Date: 20050622
  Receipt Date: 20050608
  Transmission Date: 20051028
  Serious: Yes (Hospitalization)
  Sender: FDA-Public Use
  Company Number: 2005BI003159

PATIENT
  Age: 57 Year
  Sex: Male

DRUGS (2)
  1. AVONEX [Suspect]
     Indication: MULTIPLE SCLEROSIS
     Dosage: 30 UG; QW; IM
     Route: 030
     Dates: start: 20020125, end: 20031101
  2. AVONEX [Suspect]
     Indication: MULTIPLE SCLEROSIS
     Dosage: 30 UG; QW; IM
     Route: 030
     Dates: start: 20031101

REACTIONS (8)
  - BLOOD PRESSURE DECREASED [None]
  - CLOSTRIDIAL INFECTION [None]
  - DIALYSIS [None]
  - KIDNEY INFECTION [None]
  - PLEURAL EFFUSION [None]
  - PULMONARY OEDEMA [None]
  - SEPSIS [None]
  - URINARY TRACT INFECTION [None]
